FAERS Safety Report 16451463 (Version 1)
Quarter: 2019Q2

REPORT INFORMATION
  Report Type: Spontaneous
  Country: US (occurrence: US)
  Receive Date: 20190619
  Receipt Date: 20190619
  Transmission Date: 20190711
  Serious: Yes (Other)
  Sender: FDA-Public Use
  Company Number: US-BAUSCH-BL-2019-017431

PATIENT
  Sex: Male

DRUGS (2)
  1. CARDIZEM CD [Suspect]
     Active Substance: DILTIAZEM HYDROCHLORIDE
     Indication: HYPERTENSION
     Route: 048
  2. CARTIA XT [Suspect]
     Active Substance: DILTIAZEM HYDROCHLORIDE
     Indication: HYPERTENSION
     Route: 065

REACTIONS (3)
  - Hypertension [Not Recovered/Not Resolved]
  - Product availability issue [Unknown]
  - Product substitution issue [Unknown]
